FAERS Safety Report 9580660 (Version 2)
Quarter: 2013Q4

REPORT INFORMATION
  Report Type: Spontaneous
  Country: US (occurrence: US)
  Receive Date: 20131002
  Receipt Date: 20131021
  Transmission Date: 20140711
  Serious: Yes (Hospitalization)
  Sender: FDA-Public Use
  Company Number: US-COVIDIEN/TYCO HEALTHCARE/MALLINCKRODT-T201304470

PATIENT
  Age: 76 Year
  Sex: Male

DRUGS (9)
  1. EXALGO EXTENDED RELEASE [Suspect]
     Indication: PAIN
     Dosage: 16 MG, BID
     Route: 048
  2. TRAZODONE [Suspect]
     Indication: PRODUCT USED FOR UNKNOWN INDICATION
     Dosage: UNK
  3. AZILECT [Concomitant]
     Dosage: 0.5 MG, UNK
     Route: 048
  4. ALLOPURINOL [Concomitant]
     Dosage: 300 MG, UNK
     Route: 048
  5. ACTONEL [Concomitant]
     Dosage: 150 MG, UNK
     Route: 048
  6. PANTOPRAZOLE [Concomitant]
     Dosage: 20 MG, UNK
     Route: 048
  7. ATORVASTATIN [Concomitant]
     Dosage: 40 MG, UNK
     Route: 048
  8. CARBIDOPA LEVODOPA [Concomitant]
     Dosage: 25-100 MG
     Route: 048
  9. METOPROLOL [Concomitant]
     Dosage: 50 MG, UNK
     Route: 048

REACTIONS (4)
  - Unresponsive to stimuli [Recovering/Resolving]
  - Peripheral coldness [Recovering/Resolving]
  - Parkinson^s disease [Recovering/Resolving]
  - Off label use [Unknown]
